FAERS Safety Report 11827703 (Version 2)
Quarter: 2016Q1

REPORT INFORMATION
  Report Type: Spontaneous
  Country: US (occurrence: US)
  Receive Date: 20151211
  Receipt Date: 20160107
  Transmission Date: 20160525
  Serious: No
  Sender: FDA-Public Use
  Company Number: ALCN2015US007567

PATIENT

DRUGS (2)
  1. PAZEO [Suspect]
     Active Substance: OLOPATADINE HYDROCHLORIDE
     Indication: PRODUCT USED FOR UNKNOWN INDICATION
     Dosage: UNK, NO TREATMENT
     Route: 047
  2. PATADAY [Suspect]
     Active Substance: OLOPATADINE HYDROCHLORIDE
     Indication: PRODUCT USED FOR UNKNOWN INDICATION
     Dosage: UNK, NO TREATMENT
     Route: 047

REACTIONS (1)
  - Circumstance or information capable of leading to medication error [Unknown]
